FAERS Safety Report 10417024 (Version 1)
Quarter: 2014Q3

REPORT INFORMATION
  Report Type: Spontaneous
  Country: IT (occurrence: IT)
  Receive Date: 20140828
  Receipt Date: 20140828
  Transmission Date: 20150326
  Serious: Yes (Hospitalization)
  Sender: FDA-Public Use
  Company Number: PHHY2014IT104610

PATIENT
  Age: 90 Year
  Sex: Female

DRUGS (5)
  1. ATENOLOL+CHLORTHALIDONE [Suspect]
     Active Substance: ATENOLOL\CHLORTHALIDONE
     Indication: HYPERTENSION
     Dosage: 1 DF, QD
     Route: 048
     Dates: start: 20100601, end: 20140811
  2. MIRTAZAPINE. [Concomitant]
     Active Substance: MIRTAZAPINE
  3. REMINYL [Concomitant]
     Active Substance: GALANTAMINE
  4. LORAZEPAM. [Concomitant]
     Active Substance: LORAZEPAM
  5. EBIXA [Concomitant]
     Active Substance: MEMANTINE HYDROCHLORIDE

REACTIONS (2)
  - Confusional state [Recovering/Resolving]
  - Hypokalaemia [Recovering/Resolving]

NARRATIVE: CASE EVENT DATE: 20140811
